FAERS Safety Report 20827818 (Version 1)
Quarter: 2022Q2

REPORT INFORMATION
  Report Type: Spontaneous
  Country: US (occurrence: None)
  Receive Date: 20220513
  Receipt Date: 20220513
  Transmission Date: 20220721
  Serious: Yes (Hospitalization)
  Sender: FDA-Public Use
  Company Number: None

PATIENT
  Sex: Male

DRUGS (1)
  1. IMATINIB [Suspect]
     Active Substance: IMATINIB
     Indication: Acute lymphocytic leukaemia
     Dosage: FREQUENCY : DAILY;?
     Route: 048
     Dates: start: 20200123

REACTIONS (5)
  - Pneumonia bacterial [None]
  - Pneumonia viral [None]
  - Therapy interrupted [None]
  - Anxiety [None]
  - Post-traumatic stress disorder [None]
